FAERS Safety Report 20784352 (Version 3)
Quarter: 2022Q2

REPORT INFORMATION
  Report Type: Spontaneous
  Country: US (occurrence: US)
  Receive Date: 20220504
  Receipt Date: 20220621
  Transmission Date: 20220721
  Serious: No
  Sender: FDA-Public Use
  Company Number: US-JNJFOC-20220445678

PATIENT
  Age: 58 Year
  Sex: Female
  Weight: 84.898 kg

DRUGS (2)
  1. TREMFYA [Suspect]
     Active Substance: GUSELKUMAB
     Indication: Psoriasis
     Route: 058
     Dates: start: 20220422
  2. TREMFYA [Suspect]
     Active Substance: GUSELKUMAB
     Indication: Psoriatic arthropathy

REACTIONS (8)
  - Device malfunction [Unknown]
  - Product dose omission issue [Unknown]
  - Product label issue [Unknown]
  - Product complaint [Unknown]
  - Psoriasis [Unknown]
  - Pain in extremity [Unknown]
  - Nasopharyngitis [Unknown]
  - Drug delivery system malfunction [Unknown]

NARRATIVE: CASE EVENT DATE: 20220422
